FAERS Safety Report 4765796-8 (Version None)
Quarter: 2005Q3

REPORT INFORMATION
  Report Type: 
  Country: None (occurrence: None)
  Receive Date: 20050906
  Receipt Date: 20050826
  Transmission Date: 20060218
  Serious: Yes (Other)
  Sender: FDA-Public Use
  Company Number: 2005121144

PATIENT
  Age: 78 Year
  Sex: Female
  Weight: 55 kg

DRUGS (8)
  1. ZOLOFT [Suspect]
     Indication: DEPRESSION
     Dosage: 50 MG, ORAL
     Route: 048
     Dates: end: 20050121
  2. HYDROCHLOROTHIAZIDE [Suspect]
     Indication: ILL-DEFINED DISORDER
     Dosage: 25 MG
     Dates: start: 20040701, end: 20040801
  3. CARBAMAZEPINE [Suspect]
     Indication: CONVULSION
     Dosage: 400 MG (200 MG, 2 IN 1 D), ORAL
     Route: 048
     Dates: start: 20040915
  4. TRIAZIDE (TRICHLORMETHIAZIDE) [Suspect]
     Indication: ILL-DEFINED DISORDER
     Dosage: 12.5 MG, ORAL
     Route: 048
     Dates: start: 20040801
  5. BLOPRESS PLUS (CANDESARTAN CILEXETIL, HYDROCHLOROTHIAZIDE [Concomitant]
  6. RAMIPRIL [Concomitant]
  7. CARMEN (LERCANIDIPINE) [Concomitant]
  8. SODIUM CHLORIDE 0.9% [Concomitant]

REACTIONS (3)
  - CONVULSION [None]
  - DRUG INTERACTION [None]
  - HYPONATRAEMIA [None]
